FAERS Safety Report 17009928 (Version 2)
Quarter: 2020Q1

REPORT INFORMATION
  Report Type: Spontaneous
  Country: US (occurrence: US)
  Receive Date: 20191108
  Receipt Date: 20200108
  Transmission Date: 20200409
  Serious: Yes (Hospitalization, Other)
  Sender: FDA-Public Use
  Company Number: US-PFIZER INC-2019480883

PATIENT
  Age: 72 Year
  Sex: Female
  Weight: 85.73 kg

DRUGS (4)
  1. XELJANZ XR [Suspect]
     Active Substance: TOFACITINIB CITRATE
     Indication: PSORIASIS
     Dosage: UNK
     Dates: start: 20181120, end: 201911
  2. METHOTREXATE. [Concomitant]
     Active Substance: METHOTREXATE
     Dosage: 7 PER WEEK
  3. XELJANZ XR [Suspect]
     Active Substance: TOFACITINIB CITRATE
     Indication: PSORIATIC ARTHROPATHY
     Dosage: 11 MG, 1X/DAY
     Route: 048
  4. METHOTREXATE. [Concomitant]
     Active Substance: METHOTREXATE
     Indication: ARTHRITIS
     Dosage: 5 DF, WEEKLY (5 TABLETS PER WEEK)
     Route: 048
     Dates: start: 2009

REACTIONS (7)
  - Colon neoplasm [Recovered/Resolved]
  - Feeling abnormal [Not Recovered/Not Resolved]
  - Drug ineffective [Not Recovered/Not Resolved]
  - Night sweats [Not Recovered/Not Resolved]
  - Weight decreased [Unknown]
  - Thyroid mass [Recovered/Resolved]
  - Blood pressure increased [Not Recovered/Not Resolved]

NARRATIVE: CASE EVENT DATE: 20190901
